FAERS Safety Report 4447339-1 (Version None)
Quarter: 2004Q3

REPORT INFORMATION
  Report Type: 
  Country: None (occurrence: None)
  Receive Date: 20040813
  Receipt Date: 20040702
  Transmission Date: 20050211
  Serious: No
  Sender: FDA-Public Use
  Company Number: S04-USA-03911-01

PATIENT
  Age: 84 Year
  Sex: Female

DRUGS (13)
  1. NAMENDA [Suspect]
     Indication: MENTAL DISORDER DUE TO A GENERAL MEDICAL CONDITION
     Dosage: 20 MG QD PO
     Route: 048
     Dates: start: 20040528
  2. NAMENDA [Suspect]
     Indication: MENTAL DISORDER DUE TO A GENERAL MEDICAL CONDITION
     Dosage: 5 MG QD PO
     Route: 048
     Dates: start: 20040507, end: 20040513
  3. NAMENDA [Suspect]
     Indication: MENTAL DISORDER DUE TO A GENERAL MEDICAL CONDITION
     Dosage: 10 MG QD PO
     Route: 048
     Dates: start: 20040514, end: 20040520
  4. NAMENDA [Suspect]
     Indication: MENTAL DISORDER DUE TO A GENERAL MEDICAL CONDITION
     Dosage: 15 MG QD PO
     Route: 048
     Dates: start: 20040521, end: 20040527
  5. NITROGLYCERIN [Concomitant]
  6. ZOLOFT [Concomitant]
  7. FLAGYL [Concomitant]
  8. ASPIRIN [Concomitant]
  9. ARICEPT [Concomitant]
  10. RISPERDAL [Concomitant]
  11. REMERON [Concomitant]
  12. VIACTIV [Concomitant]
  13. MULTI-VITAMIN [Concomitant]

REACTIONS (3)
  - ASTHENIA [None]
  - FALL [None]
  - MENTAL IMPAIRMENT [None]
